FAERS Safety Report 16954370 (Version 1)
Quarter: 2019Q4

REPORT INFORMATION
  Report Type: Report from Study
  Country: BE (occurrence: BE)
  Receive Date: 20191023
  Receipt Date: 20191023
  Transmission Date: 20200122
  Serious: Yes (Hospitalization, Other)
  Sender: FDA-Public Use
  Company Number: BE-GILEAD-2019-0419145

PATIENT
  Age: 71 Year
  Sex: Female
  Weight: 58.5 kg

DRUGS (39)
  1. CYCLOPHOSPHAMIDE. [Suspect]
     Active Substance: CYCLOPHOSPHAMIDE
     Dosage: 789.85
     Route: 042
     Dates: start: 20190802, end: 20190802
  2. ASAFLOW [Concomitant]
     Active Substance: ASPIRIN
     Dosage: 80,MG,DAILY
     Route: 048
     Dates: start: 20141201
  3. MOUTHWASH [Concomitant]
     Active Substance: CETYLPYRIDINIUM CHLORIDE
     Dosage: 10,ML,AS NECESSARY
     Route: 061
     Dates: start: 20181219, end: 20190620
  4. FOLAVIT [Concomitant]
     Active Substance: FOLIC ACID
     Dosage: 0.4,MG,OTHER
     Route: 048
     Dates: start: 20190501, end: 20190620
  5. NACL [Concomitant]
     Active Substance: SODIUM CHLORIDE
     Dosage: 500,ML,AS NECESSARY
     Route: 042
     Dates: start: 20190718, end: 20190720
  6. GLUCOSE [Concomitant]
     Active Substance: DEXTROSE
     Dosage: 5,OTHER,DAILY
     Route: 042
     Dates: start: 20190811, end: 20190812
  7. CYCLOPHOSPHAMIDE. [Suspect]
     Active Substance: CYCLOPHOSPHAMIDE
     Dosage: 789.85
     Route: 042
     Dates: start: 20190801, end: 20190801
  8. PARACETAMOL FRESENIUS [Concomitant]
     Dosage: 500,MG,ONCE
     Route: 042
     Dates: start: 20190718, end: 20190718
  9. POTASSIUM CHLORIDE. [Concomitant]
     Active Substance: POTASSIUM CHLORIDE
     Dosage: 40,OTHER,AS NECESSARY
     Route: 042
     Dates: start: 20190811, end: 20190813
  10. CYCLOPHOSPHAMIDE. [Suspect]
     Active Substance: CYCLOPHOSPHAMIDE
     Indication: BONE MARROW CONDITIONING REGIMEN
     Dosage: 789.8
     Route: 042
     Dates: start: 20190731, end: 20190731
  11. FLUDARABINE [Suspect]
     Active Substance: FLUDARABINE PHOSPHATE
     Dosage: 47.39
     Route: 042
     Dates: start: 20190801, end: 20190802
  12. ASAFLOW [Concomitant]
     Active Substance: ASPIRIN
     Dosage: 80,MG,DAILY
     Route: 048
     Dates: start: 20141201, end: 20190813
  13. PARACODEINE [Concomitant]
     Dosage: 10,MG,AS NECESSARY
     Route: 048
     Dates: start: 20190801, end: 20190805
  14. PANTOMED [DEXPANTHENOL] [Concomitant]
     Dosage: 40,MG,AS NECESSARY
     Route: 042
     Dates: start: 20190812, end: 20190820
  15. DESLORATADINE. [Concomitant]
     Active Substance: DESLORATADINE
     Dosage: 5,MG,TWICE DAILY
     Route: 048
     Dates: start: 20190621, end: 20190625
  16. DAFALGAN [Concomitant]
     Active Substance: ACETAMINOPHEN
     Dosage: 500,MG,AS NECESSARY
     Route: 048
     Dates: start: 20190715
  17. LITICAN [ALIZAPRIDE] [Concomitant]
     Dosage: 50,MG,AS NECESSARY
     Route: 042
     Dates: start: 20190801, end: 20190815
  18. MEDICA [CHLORHEXIDINE GLUCONATE;LIDOCAINE HYDROCHLORIDE] [Concomitant]
     Dosage: 1,OTHER,ONCE
     Route: 048
     Dates: start: 20190805, end: 20190805
  19. PARACETAMOL [Concomitant]
     Active Substance: ACETAMINOPHEN
     Dosage: 1,G,AS NECESSARY
     Route: 042
     Dates: start: 20190809, end: 20190815
  20. LARGACTIL [CHLORPROMAZINE] [Concomitant]
     Active Substance: CHLORPROMAZINE
     Dosage: 6.25,MG,AS NECESSARY
     Route: 042
     Dates: start: 20190811, end: 20190811
  21. FLUDARABINE [Suspect]
     Active Substance: FLUDARABINE PHOSPHATE
     Indication: BONE MARROW CONDITIONING REGIMEN
     Dosage: 47.4
     Route: 042
     Dates: start: 20190731, end: 20190802
  22. NACL [Concomitant]
     Active Substance: SODIUM CHLORIDE
     Dosage: 500,ML,AS NECESSARY
     Route: 042
     Dates: start: 20190730, end: 20190820
  23. LASIX [Concomitant]
     Active Substance: FUROSEMIDE
     Dosage: 40,MG,ONCE
     Route: 042
     Dates: start: 20190801, end: 20190801
  24. ZYRTEC [Concomitant]
     Active Substance: CETIRIZINE HYDROCHLORIDE
     Dosage: 10,MG,ONCE
     Route: 048
     Dates: start: 20190805, end: 20190805
  25. MOVICOL [Concomitant]
     Active Substance: POLYETHYLENE GLYCOL 3350\POTASSIUM CHLORIDE\SODIUM BICARBONATE\SODIUM CHLORIDE
     Dosage: 13.8,G,AS NECESSARY
     Route: 048
     Dates: start: 20181001, end: 20190704
  26. MOVICOL [Concomitant]
     Active Substance: POLYETHYLENE GLYCOL 3350\POTASSIUM CHLORIDE\SODIUM BICARBONATE\SODIUM CHLORIDE
     Dosage: 13.79,G,DAILY
     Route: 048
     Dates: start: 20190803, end: 20190803
  27. BEFACT FORTE [Concomitant]
     Dosage: 1,OTHER,DAILY
     Route: 048
     Dates: start: 20181128
  28. DAFALGAN [Concomitant]
     Active Substance: ACETAMINOPHEN
     Dosage: 1,G,ONCE
     Route: 048
     Dates: start: 20190805, end: 20190805
  29. CLEXANE [Concomitant]
     Active Substance: ENOXAPARIN SODIUM
     Dosage: 40,MG,DAILY
     Route: 058
     Dates: start: 20190730, end: 20190820
  30. OXYGEN. [Concomitant]
     Active Substance: OXYGEN
     Dosage: 2,L,AS NECESSARY
     Route: 045
     Dates: start: 20190805, end: 20190805
  31. CEFEPIM [Concomitant]
     Active Substance: CEFEPIME HYDROCHLORIDE
     Dosage: 2,G,THREE TIMES DAILY
     Route: 042
     Dates: start: 20190809, end: 20190815
  32. IBUPROFEN. [Concomitant]
     Active Substance: IBUPROFEN
     Dosage: 400,MG,AS NECESSARY
     Route: 048
     Dates: start: 20190810, end: 20190811
  33. VOLTARENE (DICLOFENAC SODIUM) [Concomitant]
     Active Substance: DICLOFENAC SODIUM
     Dosage: 75,MG,AS NECESSARY
     Route: 042
     Dates: start: 20190811, end: 20190812
  34. DAFALGAN [Concomitant]
     Active Substance: ACETAMINOPHEN
     Dosage: 500,MG,AS NECESSARY
     Route: 048
     Dates: start: 20190821
  35. AXICABTAGENE CILOLEUCEL [Suspect]
     Active Substance: AXICABTAGENE CILOLEUCEL
     Indication: DIFFUSE LARGE B-CELL LYMPHOMA
     Dosage: 68
     Route: 042
     Dates: start: 20190805, end: 20190805
  36. STEOVIT D3 [Concomitant]
     Active Substance: CALCIUM CARBONATE\CHOLECALCIFEROL
     Dosage: 1000/880,OTHER,DAILY
     Route: 048
     Dates: start: 20181116
  37. DAFALGAN [Concomitant]
     Active Substance: ACETAMINOPHEN
     Dosage: 500,MG,AS NECESSARY
     Route: 048
     Dates: start: 20190715, end: 20190719
  38. ZOFRAN [Concomitant]
     Active Substance: ONDANSETRON HYDROCHLORIDE
     Dosage: 8,MG,TWICE DAILY
     Route: 048
     Dates: start: 20190731, end: 20190807
  39. ZYLORIC [Concomitant]
     Active Substance: ALLOPURINOL
     Dosage: 300,MG,DAILY
     Route: 048
     Dates: start: 20190731, end: 20190808

REACTIONS (6)
  - Dyspraxia [Recovered/Resolved]
  - Confusional state [Recovered/Resolved]
  - Somnolence [Recovered/Resolved]
  - Dysarthria [Recovered/Resolved]
  - Encephalopathy [Recovered/Resolved]
  - Bronchitis [Recovered/Resolved]

NARRATIVE: CASE EVENT DATE: 20190718
